FAERS Safety Report 4531243-4 (Version None)
Quarter: 2004Q4

REPORT INFORMATION
  Report Type: 
  Country: None (occurrence: None)
  Receive Date: 20041216
  Receipt Date: 20041026
  Transmission Date: 20050328
  Serious: Yes (Hospitalization)
  Sender: FDA-Public Use
  Company Number: Z002-204-0015

PATIENT
  Age: 61 Year
  Sex: Female

DRUGS (17)
  1. ZONISAMIDE [Suspect]
     Indication: PARKINSON'S DISEASE
     Dosage: DOUBLEBLIND, 1 IN 1 D, ORAL
     Route: 048
     Dates: start: 20040512, end: 20040621
  2. STEROID OINTMENT [Suspect]
     Indication: TOXIC SKIN ERUPTION
     Dosage: TRANSDERMAL
     Route: 062
     Dates: start: 20040621
  3. PLACEBO (ZONISAMIDE) [Suspect]
  4. ADOFEED (FLURBIPROFEN) [Concomitant]
  5. SINEMET [Concomitant]
  6. SYMMETREL [Concomitant]
  7. AMOBAN (ZOPICLONE) [Concomitant]
  8. SELEGILINE HYDROCHLORIDE (SELEGILINE HYDROCHLORIDE) [Concomitant]
  9. CABERGOLINE [Concomitant]
  10. FAMOTIDINE [Concomitant]
  11. LOXONIN (LOXOPROFEN SODIUM) [Concomitant]
  12. MUCOSTA (REBAMIPIDE) [Concomitant]
  13. METHYCOBAL (MECOBALAMIN) [Concomitant]
  14. FELBINAC (FELBINAC) [Concomitant]
  15. HALCION [Concomitant]
  16. SHAKUYAKU-KANZO-TO [Concomitant]
  17. MS ONSHIPPU [Concomitant]

REACTIONS (1)
  - TOXIC SKIN ERUPTION [None]
